FAERS Safety Report 8462666-9 (Version None)
Quarter: 2012Q2

REPORT INFORMATION
  Report Type: 
  Country: None (occurrence: None)
  Receive Date: 20120625
  Receipt Date: 20120621
  Transmission Date: 20120825
  Serious: Yes (Hospitalization)
  Sender: FDA-Public Use
  Company Number: BR-ROCHE-1080959

PATIENT
  Sex: Female
  Weight: 56 kg

DRUGS (1)
  1. CLONAZEPAM [Suspect]
     Indication: INSOMNIA RELATED TO ANOTHER MENTAL CONDITION
     Route: 048
     Dates: start: 20070101, end: 20120619

REACTIONS (3)
  - DYSSTASIA [None]
  - ACCIDENTAL EXPOSURE [None]
  - SOMNOLENCE [None]
